FAERS Safety Report 7373060-6 (Version None)
Quarter: 2011Q1

REPORT INFORMATION
  Report Type: 
  Country: None (occurrence: None)
  Receive Date: 20110324
  Receipt Date: 20110317
  Transmission Date: 20110831
  Serious: Yes (Death, Hospitalization)
  Sender: FDA-Public Use
  Company Number: US-GILEAD-2011-0037443

PATIENT
  Sex: Male

DRUGS (3)
  1. REMODULIN [Concomitant]
  2. LETAIRIS [Suspect]
     Indication: PRODUCT USED FOR UNKNOWN INDICATION
     Route: 048
     Dates: start: 20110216
  3. REVATIO [Concomitant]

REACTIONS (3)
  - FLUID RETENTION [None]
  - DEATH [None]
  - RENAL DISORDER [None]
